FAERS Safety Report 14971613 (Version 1)
Quarter: 2018Q2

REPORT INFORMATION
  Report Type: Report from Study
  Country: KR (occurrence: KR)
  Receive Date: 20180604
  Receipt Date: 20180604
  Transmission Date: 20180711
  Serious: Yes (Hospitalization)
  Sender: FDA-Public Use
  Company Number: KR-AMGEN-KORCT2018075673

PATIENT
  Sex: Female

DRUGS (7)
  1. DOXORUBICIN [Concomitant]
     Active Substance: DOXORUBICIN
     Dosage: 100 MG, UNK
     Route: 065
     Dates: start: 20180328, end: 20180328
  2. DOXORUBICIN [Concomitant]
     Active Substance: DOXORUBICIN
     Dosage: 100 MG, UNK
     Route: 065
     Dates: start: 20180418, end: 20180418
  3. PEGFILGRASTIM [Suspect]
     Active Substance: PEGFILGRASTIM
     Indication: BREAST CANCER
     Dosage: 6 MG, UNK
     Route: 058
     Dates: start: 20180420, end: 20180420
  4. CYCLOPHOSPHAMIDE. [Concomitant]
     Active Substance: CYCLOPHOSPHAMIDE
     Dosage: 1014 MG, UNK
     Route: 065
     Dates: start: 20180328, end: 20180328
  5. CYCLOPHOSPHAMIDE. [Concomitant]
     Active Substance: CYCLOPHOSPHAMIDE
     Dosage: 1014 MG, UNK
     Route: 065
     Dates: start: 20180418, end: 20180418
  6. DOXORUBICIN [Concomitant]
     Active Substance: DOXORUBICIN
     Dosage: 100 MG, UNK
     Route: 065
     Dates: start: 20180508, end: 20180508
  7. CYCLOPHOSPHAMIDE. [Concomitant]
     Active Substance: CYCLOPHOSPHAMIDE
     Dosage: 1020 MG, UNK
     Route: 065
     Dates: start: 20180508, end: 20180508

REACTIONS (1)
  - Wound infection [Recovering/Resolving]

NARRATIVE: CASE EVENT DATE: 20180521
